FAERS Safety Report 8439706-6 (Version None)
Quarter: 2012Q2

REPORT INFORMATION
  Report Type: 
  Country: None (occurrence: None)
  Receive Date: 20120615
  Receipt Date: 20120612
  Transmission Date: 20120825
  Serious: Yes (Hospitalization)
  Sender: FDA-Public Use
  Company Number: FR-SANOFI-AVENTIS-2011SA025488

PATIENT
  Age: 60 Year
  Sex: Male

DRUGS (6)
  1. LASIX [Suspect]
     Route: 065
     Dates: start: 20101201, end: 20110113
  2. PREVISCAN [Suspect]
     Route: 048
     Dates: start: 20110102, end: 20110113
  3. ALLOPURINOL [Suspect]
     Route: 048
     Dates: start: 20101201, end: 20110113
  4. LEVOFLOXACIN [Suspect]
     Indication: ENTEROBACTER INFECTION
     Route: 048
     Dates: start: 20110104, end: 20110108
  5. AMLODIPINE BESYLATE [Suspect]
     Route: 048
     Dates: start: 20101201, end: 20110113
  6. ESOMEPRAZOLE [Suspect]
     Route: 048
     Dates: start: 20101227, end: 20110113

REACTIONS (1)
  - DRUG RASH WITH EOSINOPHILIA AND SYSTEMIC SYMPTOMS [None]
